FAERS Safety Report 5307814-4 (Version None)
Quarter: 2007Q1

REPORT INFORMATION
  Report Type: 
  Country: None (occurrence: None)
  Receive Date: 20070201
  Receipt Date: 20061209
  Transmission Date: 20070707
  Serious: No
  Sender: FDA-Public Use
  Company Number: 2006PV026636

PATIENT
  Age: 55 Year
  Sex: Female
  Weight: 98.4306 kg

DRUGS (2)
  1. BYETTA [Suspect]
     Indication: DIABETES MELLITUS NON-INSULIN-DEPENDENT
     Dosage: 5 MCG BID SC
     Route: 058
     Dates: start: 20061202
  2. PREDNISONE TAB [Suspect]
     Indication: DRUG USE FOR UNKNOWN INDICATION
     Dates: end: 20061201

REACTIONS (3)
  - ASTHENIA [None]
  - MUSCLE SPASMS [None]
  - PAIN IN EXTREMITY [None]
